FAERS Safety Report 15844801 (Version 1)
Quarter: 2019Q1

REPORT INFORMATION
  Report Type: Report from Study
  Country: CA (occurrence: CA)
  Receive Date: 20190118
  Receipt Date: 20190118
  Transmission Date: 20190417
  Serious: Yes (Other)
  Sender: FDA-Public Use
  Company Number: CA-PFIZER INC-2019024844

PATIENT
  Age: 12 Year
  Sex: Female
  Weight: 61 kg

DRUGS (2)
  1. METHOTREXATE SODIUM. [Suspect]
     Active Substance: METHOTREXATE SODIUM
     Indication: PRODUCT USED FOR UNKNOWN INDICATION
     Dosage: UNK
     Route: 065
  2. REMICADE [Suspect]
     Active Substance: INFLIXIMAB
     Indication: CROHN^S DISEASE
     Dosage: 8 MG/KG, UNK [1 EVERY 4 WEEK(S)]
     Route: 042

REACTIONS (6)
  - Musculoskeletal pain [Unknown]
  - Off label use [Unknown]
  - Back pain [Unknown]
  - Product use issue [Unknown]
  - Asthenia [Unknown]
  - Psoriasis [Unknown]
